FAERS Safety Report 7743357-6 (Version None)
Quarter: 2011Q3

REPORT INFORMATION
  Report Type: 
  Country: None (occurrence: None)
  Receive Date: 20110912
  Receipt Date: 20110831
  Transmission Date: 20111222
  Serious: Yes (Other)
  Sender: FDA-Public Use
  Company Number: PHFR2011GB02056

PATIENT
  Sex: Male

DRUGS (3)
  1. CLOZAPINE [Suspect]
     Dosage: 100 MG, BID
     Route: 048
     Dates: start: 20110325
  2. CLOZAPINE [Suspect]
     Indication: SCHIZOPHRENIA
     Dosage: UNK MG, UNK
     Route: 048
     Dates: start: 20110309
  3. CLOZAPINE [Suspect]
     Dosage: 100 MG, BID
     Route: 048
     Dates: end: 20110321

REACTIONS (7)
  - DIZZINESS [None]
  - LIVER FUNCTION TEST ABNORMAL [None]
  - CONSTIPATION [None]
  - BLOOD ALKALINE PHOSPHATASE INCREASED [None]
  - ALANINE AMINOTRANSFERASE INCREASED [None]
  - HYPERTENSION [None]
  - PANCREATITIS CHRONIC [None]
